FAERS Safety Report 17114280 (Version 1)
Quarter: 2019Q4

REPORT INFORMATION
  Report Type: Spontaneous
  Country: GB (occurrence: GB)
  Receive Date: 20191205
  Receipt Date: 20191205
  Transmission Date: 20200122
  Serious: Yes (Hospitalization)
  Sender: FDA-Public Use
  Company Number: GB-TEVA-2019-GB-1146782

PATIENT
  Age: 20 Year
  Sex: Male

DRUGS (5)
  1. CARBAMAZEPINE. [Suspect]
     Active Substance: CARBAMAZEPINE
     Indication: SEIZURE
     Dosage: 400 MG
     Route: 048
     Dates: start: 20190913, end: 20191012
  2. CO-AMOXICLAV [Concomitant]
     Active Substance: AMOXICILLIN\CLAVULANATE POTASSIUM
  3. CLOBAZAM. [Concomitant]
     Active Substance: CLOBAZAM
  4. AMOXICILLIN. [Concomitant]
     Active Substance: AMOXICILLIN
  5. CETIRIZINE [Concomitant]
     Active Substance: CETIRIZINE HYDROCHLORIDE

REACTIONS (9)
  - Lymphadenopathy [Not Recovered/Not Resolved]
  - Decreased appetite [Recovered/Resolved]
  - Liver function test abnormal [Recovering/Resolving]
  - Leukopenia [Recovered/Resolved]
  - Diarrhoea [Recovered/Resolved]
  - Rash morbilliform [Recovering/Resolving]
  - Colitis [Recovered/Resolved]
  - Thrombocytopenia [Recovered/Resolved with Sequelae]
  - Pulmonary cavitation [Not Recovered/Not Resolved]

NARRATIVE: CASE EVENT DATE: 20191009
